FAERS Safety Report 7742765-7 (Version None)
Quarter: 2011Q3

REPORT INFORMATION
  Report Type: 
  Country: None (occurrence: None)
  Receive Date: 20110912
  Receipt Date: 20110902
  Transmission Date: 20111222
  Serious: Yes (Hospitalization)
  Sender: FDA-Public Use
  Company Number: IT-NOVOPROD-334504

PATIENT

DRUGS (9)
  1. CLOPIXOL                           /00876702/ [Concomitant]
  2. LANTUS [Suspect]
     Indication: PRODUCT USED FOR UNKNOWN INDICATION
     Dosage: 9 U, QD
     Route: 058
     Dates: start: 20110101
  3. ASPIRIN [Concomitant]
  4. ALLOPURINOL [Concomitant]
  5. ACTRAPID [Suspect]
     Indication: DIABETES MELLITUS
     Dosage: 9 U, QD
     Route: 058
     Dates: start: 20110101
  6. LORAZEPAM [Concomitant]
     Dosage: 1 MG, UNK
  7. DERMATRANS                         /00003201/ [Concomitant]
     Dosage: 5 MG, QD
     Route: 062
  8. LASIX [Concomitant]
  9. ANTRA                              /00661201/ [Concomitant]

REACTIONS (2)
  - HYPOGLYCAEMIA [None]
  - CARDIAC FAILURE [None]
